FAERS Safety Report 7293101-4 (Version None)
Quarter: 2011Q1

REPORT INFORMATION
  Report Type: 
  Country: None (occurrence: None)
  Receive Date: 20110203
  Receipt Date: 20090618
  Transmission Date: 20110831
  Serious: No
  Sender: FDA-Public Use
  Company Number: 2009-00075

PATIENT
  Age: 60 Year
  Sex: Female
  Weight: 65.7716 kg

DRUGS (4)
  1. ZITHROMAX [Concomitant]
  2. ZICAM COLD REMEDY NASAL GEL [Suspect]
     Dosage: 3 DOSES
     Dates: start: 20090301, end: 20090301
  3. HORMONE REPLACEMENT THERAPY (NONSPECIFIC) [Concomitant]
  4. LEVAQUIN [Concomitant]

REACTIONS (3)
  - AGEUSIA [None]
  - SINUSITIS [None]
  - ANOSMIA [None]
